FAERS Safety Report 5476968-1 (Version None)
Quarter: 2007Q4

REPORT INFORMATION
  Report Type: 
  Country: None (occurrence: None)
  Receive Date: 20071003
  Receipt Date: 20071003
  Transmission Date: 20080405
  Serious: Yes (Hospitalization)
  Sender: FDA-Public Use
  Company Number: None

PATIENT
  Age: 66 Year
  Sex: Female
  Weight: 61 kg

DRUGS (1)
  1. PURITAN PRIDE VITA-MIN  MULTIVITAMIN  PURITAN PRIDE [Suspect]
     Indication: PROPHYLAXIS
     Dosage: 1 TAB  QID  PO
     Route: 048
     Dates: start: 20070727, end: 20070823

REACTIONS (1)
  - NEUROPATHY [None]
